FAERS Safety Report 8600314-5 (Version None)
Quarter: 2012Q3

REPORT INFORMATION
  Report Type: 
  Country: None (occurrence: None)
  Receive Date: 20120817
  Receipt Date: 20120813
  Transmission Date: 20120928
  Serious: No
  Sender: FDA-Public Use
  Company Number: US-BIOGENIDEC-2012BI031306

PATIENT
  Sex: Male

DRUGS (1)
  1. AVONEX [Suspect]
     Indication: MULTIPLE SCLEROSIS
     Route: 030
     Dates: start: 20080423

REACTIONS (8)
  - INJECTION SITE HAEMORRHAGE [None]
  - HYPOAESTHESIA [None]
  - PAIN [None]
  - NERVOUSNESS [None]
  - OPTIC NEURITIS [None]
  - INFLUENZA LIKE ILLNESS [None]
  - MUSCLE TWITCHING [None]
  - MEMORY IMPAIRMENT [None]
